FAERS Safety Report 9090271 (Version 2)
Quarter: 2013Q1

REPORT INFORMATION
  Report Type: Report from Study
  Country: CA (occurrence: CA)
  Receive Date: 20130131
  Receipt Date: 20130214
  Transmission Date: 20140127
  Serious: Yes (Life-Threatening, Hospitalization, Other)
  Sender: FDA-Public Use
  Company Number: CA-ROCHE-1186028

PATIENT
  Age: 57 Year
  Sex: Female
  Weight: 59.02 kg

DRUGS (5)
  1. PEGASYS [Suspect]
     Indication: HEPATITIS C
     Route: 058
     Dates: start: 20121119
  2. COPEGUS [Suspect]
     Indication: HEPATITIS C
     Route: 048
     Dates: start: 20121119, end: 20130119
  3. EPREX [Suspect]
     Indication: HEPATITIS C
     Route: 058
     Dates: start: 20130103, end: 20130110
  4. MELOXICAM [Concomitant]
     Indication: ARTHRITIS
     Route: 048
  5. RISEDRONATE [Concomitant]
     Route: 048

REACTIONS (3)
  - Bleeding varicose vein [Unknown]
  - Hepatomegaly [Unknown]
  - Ascites [Unknown]
